FAERS Safety Report 19250449 (Version 3)
Quarter: 2021Q3

REPORT INFORMATION
  Report Type: Spontaneous
  Country: BE (occurrence: BE)
  Receive Date: 20210513
  Receipt Date: 20210913
  Transmission Date: 20211014
  Serious: Yes (Death, Hospitalization)
  Sender: FDA-Public Use
  Company Number: BE-JNJFOC-20210503873

PATIENT
  Age: 32 Year
  Sex: Male

DRUGS (4)
  1. AMPHETAMINE [Suspect]
     Active Substance: AMPHETAMINE
     Indication: PRODUCT USED FOR UNKNOWN INDICATION
     Route: 065
  2. ALCOHOL. [Suspect]
     Active Substance: ALCOHOL
     Indication: PRODUCT USED FOR UNKNOWN INDICATION
     Route: 065
  3. PARACETAMOL [Suspect]
     Active Substance: ACETAMINOPHEN
     Indication: PRODUCT USED FOR UNKNOWN INDICATION
     Dosage: UNK
     Route: 065
  4. COCAINE [Suspect]
     Active Substance: COCAINE
     Indication: PRODUCT USED FOR UNKNOWN INDICATION
     Route: 065

REACTIONS (9)
  - Brain oedema [Fatal]
  - Death [Fatal]
  - Circulatory collapse [Fatal]
  - Hypertension [Fatal]
  - Computerised tomogram abnormal [Fatal]
  - Pupil fixed [Fatal]
  - Bradypnoea [Fatal]
  - Pulseless electrical activity [Fatal]
  - Intracranial pressure increased [Fatal]
